FAERS Safety Report 24279764 (Version 1)
Quarter: 2024Q3

REPORT INFORMATION
  Report Type: Spontaneous
  Country: US (occurrence: US)
  Receive Date: 20240904
  Receipt Date: 20240904
  Transmission Date: 20241016
  Serious: Yes (Other)
  Sender: BRISTOL MYERS SQUIBB
  Company Number: US-BRISTOL-MYERS SQUIBB COMPANY-2024-136539

PATIENT
  Age: 75 Year
  Sex: Male

DRUGS (1)
  1. INREBIC [Suspect]
     Active Substance: FEDRATINIB HYDROCHLORIDE
     Indication: Myelofibrosis
     Dosage: DAILY
     Route: 048
     Dates: start: 20210901

REACTIONS (2)
  - Product dose omission issue [Unknown]
  - Arthropathy [Unknown]

NARRATIVE: CASE EVENT DATE: 20240827
